FAERS Safety Report 7049910-X (Version None)
Quarter: 2010Q4

REPORT INFORMATION
  Report Type: 
  Country: None (occurrence: None)
  Receive Date: 20101012
  Receipt Date: 20100928
  Transmission Date: 20110411
  Serious: Yes (Hospitalization, Disabling)
  Sender: FDA-Public Use
  Company Number: 1-22440019

PATIENT
  Age: 56 Year
  Sex: Female
  Weight: 99.7913 kg

DRUGS (13)
  1. METOCLOPRAMIDE [Suspect]
     Indication: GASTRIC DISORDER
     Dosage: 40 MG PER DAY, ORAL
     Route: 048
     Dates: start: 20051201, end: 20060101
  2. METOCLOPRAMIDE [Suspect]
     Indication: GASTRIC DISORDER
     Dosage: 40 MG PER DAY, ORAL
     Route: 048
     Dates: start: 20051201, end: 20090701
  3. METOCLOPRAMIDE [Suspect]
     Indication: GASTRIC DISORDER
     Dosage: 40 MG PER DAY
     Dates: start: 20090701, end: 20091101
  4. CALAN [Concomitant]
  5. ZESTRIL [Concomitant]
  6. ACTOS [Concomitant]
  7. GLUCOTROL [Concomitant]
  8. NEXIUM [Concomitant]
  9. ^PAPNATROXEN^ [Concomitant]
  10. DARVOCET [Concomitant]
  11. DIPHENHYDRAMINE HCL [Concomitant]
  12. ^ARYTHROMYCIN^ [Concomitant]
  13. ^CLARIMYACIN^ [Concomitant]

REACTIONS (14)
  - ACTIVITIES OF DAILY LIVING IMPAIRED [None]
  - ANXIETY [None]
  - DEFORMITY [None]
  - DEPRESSION [None]
  - DYSKINESIA [None]
  - EMOTIONAL DISTRESS [None]
  - EXTRAPYRAMIDAL DISORDER [None]
  - GASTROOESOPHAGEAL REFLUX DISEASE [None]
  - MENTAL DISORDER [None]
  - MULTIPLE INJURIES [None]
  - NERVOUS SYSTEM DISORDER [None]
  - PAIN [None]
  - QUALITY OF LIFE DECREASED [None]
  - TARDIVE DYSKINESIA [None]
